FAERS Safety Report 8431435-8 (Version None)
Quarter: 2012Q2

REPORT INFORMATION
  Report Type: 
  Country: None (occurrence: None)
  Receive Date: 20120607
  Receipt Date: 20120607
  Transmission Date: 20120825
  Serious: Yes (Hospitalization)
  Sender: FDA-Public Use
  Company Number: None

PATIENT
  Age: 88 Year
  Sex: Female
  Weight: 59.8748 kg

DRUGS (2)
  1. BUSPIRONE HCL [Suspect]
     Indication: UNEVALUABLE EVENT
     Dosage: 1 TABLET 2 Y DAILY MOUTH
     Route: 048
     Dates: start: 20120429
  2. BUSPIRONE HCL [Suspect]
     Indication: UNEVALUABLE EVENT
     Dosage: 1 TABLET 2 Y DAILY MOUTH
     Route: 048
     Dates: start: 20120430

REACTIONS (9)
  - DISORIENTATION [None]
  - INSOMNIA [None]
  - VISION BLURRED [None]
  - PAIN IN EXTREMITY [None]
  - LIP PAIN [None]
  - PRURITUS [None]
  - NAUSEA [None]
  - DYSPNOEA [None]
  - RENAL DISORDER [None]
